FAERS Safety Report 5648317-7 (Version None)
Quarter: 2008Q1

REPORT INFORMATION
  Report Type: 
  Country: None (occurrence: None)
  Receive Date: 20080229
  Receipt Date: 20080214
  Transmission Date: 20080703
  Serious: Yes (Congenital Anomaly)
  Sender: FDA-Public Use
  Company Number: DSA_31488_2008

PATIENT
  Sex: Male

DRUGS (2)
  1. TEMESTA / 00273201/ (TEMESTA - LORAEPAM) 1 MG (NOT SPECIFIED) [Suspect]
     Dosage: 1 MG QD TRANSPLACENTAL
     Route: 064
     Dates: start: 20060601, end: 20060705
  2. EFFEXOR [Suspect]
     Dosage: 150 MG QD TRANSPLACENTAL
     Route: 064
     Dates: start: 20060601, end: 20060705

REACTIONS (2)
  - DRUG EXPOSURE DURING PREGNANCY [None]
  - HYPOSPADIAS [None]
